FAERS Safety Report 6050496-7 (Version None)
Quarter: 2009Q1

REPORT INFORMATION
  Report Type: 
  Country: None (occurrence: None)
  Receive Date: 20090126
  Receipt Date: 20090115
  Transmission Date: 20090719
  Serious: Yes (Other)
  Sender: FDA-Public Use
  Company Number: PHEH2008US09121

PATIENT
  Sex: Male

DRUGS (2)
  1. GLEEVEC [Suspect]
     Indication: CHRONIC MYELOID LEUKAEMIA
     Dosage: 400 MG, QD
     Route: 048
     Dates: start: 20050201, end: 20080901
  2. CHEMOTHERAPEUTICS NOS [Concomitant]
     Indication: OESOPHAGEAL CARCINOMA

REACTIONS (3)
  - ADENOCARCINOMA [None]
  - BARRETT'S OESOPHAGUS [None]
  - OESOPHAGEAL CARCINOMA [None]
